FAERS Safety Report 6906210-3 (Version None)
Quarter: 2010Q3

REPORT INFORMATION
  Report Type: 
  Country: None (occurrence: None)
  Receive Date: 20100803
  Receipt Date: 20100803
  Transmission Date: 20110219
  Serious: Yes (Hospitalization)
  Sender: FDA-Public Use
  Company Number: None

PATIENT
  Age: 48 Year
  Sex: Female
  Weight: 107.0489 kg

DRUGS (1)
  1. SERTRALINE HYDROCHLORIDE [Suspect]
     Indication: DEPRESSION
     Dosage: 1 TB 1 TIME DAILY
     Dates: start: 20100710, end: 20100724

REACTIONS (7)
  - ANXIETY [None]
  - FEAR [None]
  - FEELING ABNORMAL [None]
  - IMPAIRED WORK ABILITY [None]
  - NEGATIVE THOUGHTS [None]
  - PANIC ATTACK [None]
  - THINKING ABNORMAL [None]
